FAERS Safety Report 9326883 (Version 1)
Quarter: 2013Q2

REPORT INFORMATION
  Report Type: Spontaneous
  Country: US (occurrence: None)
  Receive Date: 20130530
  Receipt Date: 20130530
  Transmission Date: 20140414
  Serious: Yes (Other)
  Sender: FDA-Public Use
  Company Number: AUR-APL-2013-04316

PATIENT
  Age: 63 Year
  Sex: Female
  Weight: 90.7 kg

DRUGS (3)
  1. METFORMIN (METFORMIN) [Suspect]
     Indication: DIABETES MELLITUS
  2. EFFEXOR XR (VENLAFAXINE HYDROCHLORIDE) (75 MILLIGRAM, CAPSULE) (VENLAFAXINE HYDROCHLORIDE) [Suspect]
     Indication: MAJOR DEPRESSION
     Dosage: 225 MG (ONE CAPSULE OF 150 MG AND ONE CAPSULE OF 75 MG DAILY IN MORNING), UNKNOWN
  3. NEURONTIN (GABAPENTIN) [Suspect]
     Indication: RESTLESS LEGS SYNDROME
     Dosage: 1800 MG (600 MG, 3 IN 1 D), UNKNOWN

REACTIONS (1)
  - Parkinson^s disease [None]
